FAERS Safety Report 8289188-2 (Version None)
Quarter: 2012Q2

REPORT INFORMATION
  Report Type: 
  Country: None (occurrence: None)
  Receive Date: 20120417
  Receipt Date: 20120410
  Transmission Date: 20120825
  Serious: Yes (Hospitalization)
  Sender: FDA-Public Use
  Company Number: PHHY2012US031472

PATIENT
  Age: 49 Year
  Sex: Female

DRUGS (3)
  1. METHOTREXATE [Concomitant]
  2. PREDNISONE TAB [Suspect]
     Indication: POLYCHONDRITIS
  3. ANTIBIOTICS [Concomitant]

REACTIONS (4)
  - PARAESTHESIA [None]
  - ERYTHEMA [None]
  - ROSACEA [None]
  - PRURITUS [None]
